FAERS Safety Report 24642798 (Version 1)
Quarter: 2024Q4

REPORT INFORMATION
  Report Type: Spontaneous
  Country: US (occurrence: None)
  Receive Date: 20241120
  Receipt Date: 20241120
  Transmission Date: 20250114
  Serious: Yes (Life-Threatening)
  Sender: Public
  Company Number: None

PATIENT
  Age: 25 Year
  Sex: Male
  Weight: 115 kg

DRUGS (7)
  1. KETOROLAC [Suspect]
     Active Substance: KETOROLAC TROMETHAMINE
     Dosage: OTHER FREQUENCY : X 1;?
     Route: 042
     Dates: start: 20241118, end: 20241118
  2. ACETAMINOPHEN [Suspect]
     Active Substance: ACETAMINOPHEN
     Dosage: OTHER FREQUENCY : X 1;?
     Route: 041
  3. DROPERIDOL [Suspect]
     Active Substance: DROPERIDOL
     Dates: start: 20241118, end: 20241118
  4. METHYLPREDNISOLONE SODIUM SUCCINATE [Suspect]
     Active Substance: METHYLPREDNISOLONE SODIUM SUCCINATE
     Dates: start: 20241118, end: 20241118
  5. DIPHENHYDRAMINE HYDROCHLORIDE [Suspect]
     Active Substance: DIPHENHYDRAMINE HYDROCHLORIDE
     Dates: start: 20241118, end: 20241118
  6. LACTATED RINGERS SOLUTION [Suspect]
     Active Substance: CALCIUM CHLORIDE\POTASSIUM CHLORIDE\SODIUM CHLORIDE\SODIUM LACTATE
  7. EPINEPHRINE [Suspect]
     Active Substance: EPINEPHRINE

REACTIONS (3)
  - Anaphylactic reaction [None]
  - Idiopathic pancreatitis [None]
  - Angioedema [None]

NARRATIVE: CASE EVENT DATE: 20241118
